FAERS Safety Report 18251658 (Version 1)
Quarter: 2020Q3

REPORT INFORMATION
  Report Type: Spontaneous
  Country: IN (occurrence: IN)
  Receive Date: 20200910
  Receipt Date: 20200910
  Transmission Date: 20201103
  Serious: Yes (Death)
  Sender: FDA-Public Use
  Company Number: IN-PFIZER INC-2020347153

PATIENT
  Age: 44 Year
  Sex: Female

DRUGS (13)
  1. LEVETIRACETAM. [Concomitant]
     Active Substance: LEVETIRACETAM
     Indication: INTRACRANIAL PRESSURE INCREASED
     Dosage: 1 G, DAILY
  2. SALINE [SODIUM CHLORIDE] [Concomitant]
     Active Substance: SODIUM CHLORIDE
     Indication: EVIDENCE BASED TREATMENT
  3. VANCOMYCIN [Concomitant]
     Active Substance: VANCOMYCIN
     Indication: EVIDENCE BASED TREATMENT
  4. CEFTRIAXONE SODIUM. [Concomitant]
     Active Substance: CEFTRIAXONE SODIUM
     Indication: EVIDENCE BASED TREATMENT
  5. ACYCLOVIR ABBOTT VIAL [Concomitant]
     Indication: EVIDENCE BASED TREATMENT
  6. METHYLPREDNISOLONE. [Suspect]
     Active Substance: METHYLPREDNISOLONE
     Indication: COVID-19
     Dosage: 1 G, DAILY (HIGH DOSE)
     Route: 042
  7. CEFTRIAXONE SODIUM. [Concomitant]
     Active Substance: CEFTRIAXONE SODIUM
     Indication: INTRACRANIAL PRESSURE INCREASED
     Dosage: 4 G, DAILY
     Route: 042
  8. LEVETIRACETAM. [Concomitant]
     Active Substance: LEVETIRACETAM
     Indication: EVIDENCE BASED TREATMENT
  9. VANCOMYCIN [Concomitant]
     Active Substance: VANCOMYCIN
     Indication: INTRACRANIAL PRESSURE INCREASED
     Dosage: 2 G, DAILY
     Route: 042
  10. MANNITOL. [Concomitant]
     Active Substance: MANNITOL
     Indication: EVIDENCE BASED TREATMENT
  11. SALINE [SODIUM CHLORIDE] [Concomitant]
     Active Substance: SODIUM CHLORIDE
     Indication: INTRACRANIAL PRESSURE INCREASED
     Dosage: 1.5 L, 1X/DAY, 0.9% (1.5 L/D)
  12. ACYCLOVIR ABBOTT VIAL [Concomitant]
     Indication: INTRACRANIAL PRESSURE INCREASED
     Dosage: 1.5 G, DAILY
  13. MANNITOL. [Concomitant]
     Active Substance: MANNITOL
     Indication: INTRACRANIAL PRESSURE INCREASED
     Dosage: 300 ML, DAILY

REACTIONS (2)
  - Drug ineffective for unapproved indication [Fatal]
  - Off label use [Unknown]
